FAERS Safety Report 24899908 (Version 1)
Quarter: 2025Q1

REPORT INFORMATION
  Report Type: Spontaneous
  Country: US (occurrence: US)
  Receive Date: 20250129
  Receipt Date: 20250129
  Transmission Date: 20250408
  Serious: No
  Sender: TOLMAR
  Company Number: US-TOLMAR, INC.-24US055228

PATIENT

DRUGS (1)
  1. ELIGARD [Suspect]
     Active Substance: LEUPROLIDE ACETATE
     Indication: Occupational exposure to product
     Dosage: 7.5 MILLIGRAM, Q 1 MONTH
     Route: 058

REACTIONS (3)
  - Intercepted product preparation error [Unknown]
  - Occupational exposure to product [Recovered/Resolved]
  - Device leakage [Unknown]
